FAERS Safety Report 22591299 (Version 1)
Quarter: 2023Q2

REPORT INFORMATION
  Report Type: Spontaneous
  Country: US (occurrence: None)
  Receive Date: 20230610
  Receipt Date: 20230610
  Transmission Date: 20230722
  Serious: Yes (Hospitalization)
  Sender: FDA-Public Use
  Company Number: None

PATIENT
  Sex: Male
  Weight: 107.8 kg

DRUGS (1)
  1. CISPLATIN [Suspect]
     Active Substance: CISPLATIN
     Dates: end: 20221219

REACTIONS (4)
  - Febrile neutropenia [None]
  - Radiation mucositis [None]
  - Hypophagia [None]
  - Malnutrition [None]

NARRATIVE: CASE EVENT DATE: 20221227
